FAERS Safety Report 23870687 (Version 1)
Quarter: 2024Q2

REPORT INFORMATION
  Report Type: Report from Study
  Country: US (occurrence: US)
  Receive Date: 20240518
  Receipt Date: 20240518
  Transmission Date: 20240716
  Serious: Yes (Other)
  Sender: FDA-Public Use
  Company Number: US-002147023-NVSC2024US103778

PATIENT
  Age: 62 Year
  Sex: Male

DRUGS (1)
  1. GLIVEC [Suspect]
     Active Substance: IMATINIB MESYLATE
     Indication: Chronic myeloid leukaemia
     Dosage: 400 MG, QD
     Route: 048
     Dates: start: 2002

REACTIONS (8)
  - Cardiac failure acute [Recovering/Resolving]
  - Hypothyroidism [Unknown]
  - Cardiac disorder [Unknown]
  - Aortic valve disease [Unknown]
  - Hyperkeratosis [Unknown]
  - Gallbladder injury [Unknown]
  - Arthropathy [Unknown]
  - Renal disorder [Unknown]
